FAERS Safety Report 8212751-1 (Version None)
Quarter: 2012Q1

REPORT INFORMATION
  Report Type: 
  Country: None (occurrence: None)
  Receive Date: 20120315
  Receipt Date: 20120308
  Transmission Date: 20120608
  Serious: Yes (Death)
  Sender: FDA-Public Use
  Company Number: JP-EISAI INC-E7389-01622-CLI-JP

PATIENT
  Sex: Female
  Weight: 45 kg

DRUGS (20)
  1. HALAVEN [Suspect]
     Indication: METASTASES TO LIVER
  2. SALIPARA CODEINE [Concomitant]
     Indication: COUGH
     Route: 048
  3. ASVERIN [Concomitant]
     Indication: COUGH
     Route: 048
  4. PROCHLORPERAZINE [Concomitant]
     Indication: PROPHYLAXIS
     Route: 048
  5. POSTERISAN [Concomitant]
     Indication: ANAL FISTULA
     Route: 054
  6. ZYPREXA [Concomitant]
     Indication: CANCER PAIN
     Route: 048
  7. HALAVEN [Suspect]
     Indication: METASTASES TO BONE
  8. MS CONTIN [Concomitant]
     Indication: CANCER PAIN
     Route: 048
  9. OXYCONTIN [Concomitant]
     Indication: CANCER PAIN
     Route: 048
  10. MAGNESIUM OXIDE [Concomitant]
     Indication: PROPHYLAXIS
     Route: 048
  11. SODIUM BICARBONATE [Concomitant]
     Indication: PROPHYLAXIS
     Route: 048
  12. DEXALTIN [Concomitant]
     Indication: PROPHYLAXIS
  13. LASIX [Concomitant]
     Indication: OEDEMA
     Route: 048
  14. ALDACTONE [Concomitant]
     Indication: OEDEMA
     Route: 048
  15. MORPHINE [Concomitant]
     Indication: CANCER PAIN
     Route: 048
  16. OXINORM [Concomitant]
     Indication: CANCER PAIN
     Route: 048
  17. HALAVEN [Suspect]
     Indication: BREAST CANCER RECURRENT
     Route: 041
     Dates: start: 20110909, end: 20110909
  18. SELBEX [Concomitant]
     Indication: PROPHYLAXIS
     Route: 048
  19. HALAVEN [Suspect]
     Indication: METASTASES TO LUNG
     Route: 041
     Dates: start: 20110812, end: 20110909
  20. LOXONIN [Concomitant]
     Indication: CANCER PAIN
     Route: 048

REACTIONS (1)
  - LYMPHANGIOSIS CARCINOMATOSA [None]
